FAERS Safety Report 14858727 (Version 1)
Quarter: 2018Q2

REPORT INFORMATION
  Report Type: Spontaneous
  Country: ES (occurrence: ES)
  Receive Date: 20180508
  Receipt Date: 20180508
  Transmission Date: 20180711
  Serious: Yes (Other)
  Sender: FDA-Public Use
  Company Number: PHHY2018ES072278

PATIENT
  Age: 48 Year
  Sex: Female

DRUGS (2)
  1. ETANERCEPT [Suspect]
     Active Substance: ETANERCEPT
     Indication: HIDRADENITIS
     Dosage: 25 MG, UNK (EVERY 4 DAYS)
     Route: 058
  2. PREDNISONE. [Concomitant]
     Active Substance: PREDNISONE
     Indication: HIDRADENITIS
     Dosage: 5 MG, QD
     Route: 065

REACTIONS (5)
  - Sepsis [Unknown]
  - Phlebitis [Unknown]
  - Product use in unapproved indication [Unknown]
  - Chorioretinitis [Recovered/Resolved]
  - Candida infection [Unknown]
